FAERS Safety Report 7730129-1 (Version None)
Quarter: 2011Q3

REPORT INFORMATION
  Report Type: 
  Country: None (occurrence: None)
  Receive Date: 20110906
  Receipt Date: 20110829
  Transmission Date: 20111222
  Serious: Yes (Hospitalization)
  Sender: FDA-Public Use
  Company Number: PHHY2011CN77993

PATIENT
  Age: 57 Year
  Sex: Female

DRUGS (2)
  1. SANDOSTATIN [Suspect]
     Dosage: 0.1 MG, UNK
  2. SANDOSTATIN [Suspect]
     Indication: PANCREATITIS ACUTE
     Dosage: 0.1 MG, UNK

REACTIONS (3)
  - NAUSEA [None]
  - ABDOMINAL PAIN UPPER [None]
  - LIVER INJURY [None]
